FAERS Safety Report 8765488 (Version 3)
Quarter: 2012Q4

REPORT INFORMATION
  Report Type: 
  Country: JP (occurrence: JP)
  Receive Date: 20120902
  Receipt Date: 20120921
  Transmission Date: 20130627
  Serious: Yes (Hospitalization)
  Sender: FDA-Public Use
  Company Number: JP-PFIZER INC-2012210217

PATIENT
  Age: 64 Year
  Sex: Female

DRUGS (1)
  1. LYRICA [Suspect]
     Indication: NEURALGIA
     Dosage: 75 mg, 2x/day
     Route: 048
     Dates: start: 20120714, end: 20120824

REACTIONS (6)
  - Pyrexia [Recovering/Resolving]
  - Rash [Recovering/Resolving]
  - Hepatic function abnormal [Recovering/Resolving]
  - Eosinophil count increased [Recovering/Resolving]
  - Lymphocyte morphology abnormal [Recovering/Resolving]
  - Lymphadenopathy [Recovering/Resolving]
